FAERS Safety Report 7201379-8 (Version None)
Quarter: 2010Q4

REPORT INFORMATION
  Report Type: 
  Country: None (occurrence: None)
  Receive Date: 20101216
  Receipt Date: 20101206
  Transmission Date: 20110411
  Serious: Yes (Hospitalization)
  Sender: FDA-Public Use
  Company Number: 2010SP059525

PATIENT
  Age: 53 Year
  Sex: Female

DRUGS (7)
  1. TEMODAL [Suspect]
     Indication: OVARIAN CANCER
     Dosage: 260 MG;QD;PO
     Route: 048
     Dates: start: 20100818, end: 20100822
  2. ABT-888 (INVESTIGATIONAL DRUG) [Suspect]
     Indication: OVARIAN CANCER
     Dosage: 40 MG;BID;PO ; 40 MG;BID;PO
     Route: 048
     Dates: start: 20100818, end: 20100824
  3. ABT-888 (INVESTIGATIONAL DRUG) [Suspect]
     Indication: OVARIAN CANCER
     Dosage: 40 MG;BID;PO ; 40 MG;BID;PO
     Route: 048
     Dates: start: 20100915, end: 20100921
  4. PARACETAMOL [Concomitant]
  5. TOLNAFTATE [Concomitant]
  6. RANITIDINE [Concomitant]
  7. TYLENOL W/ CODEINE NO. 3 [Concomitant]

REACTIONS (2)
  - DEHYDRATION [None]
  - NAUSEA [None]
